FAERS Safety Report 22142908 (Version 1)
Quarter: 2023Q1

REPORT INFORMATION
  Report Type: Spontaneous
  Country: US (occurrence: US)
  Receive Date: 20230327
  Receipt Date: 20230327
  Transmission Date: 20230417
  Serious: No
  Sender: FDA-Public Use
  Company Number: US-SA-SAC20230323000321

PATIENT
  Age: 55 Year
  Sex: Female

DRUGS (1)
  1. DUPIXENT [Suspect]
     Active Substance: DUPILUMAB
     Indication: Sinusitis
     Dosage: 2 DF, 1X
     Route: 058
     Dates: start: 20230316, end: 20230316

REACTIONS (8)
  - Mydriasis [Recovering/Resolving]
  - Periorbital swelling [Recovering/Resolving]
  - Middle insomnia [Recovering/Resolving]
  - Pruritus [Recovering/Resolving]
  - Urticaria [Recovering/Resolving]
  - Ocular hyperaemia [Recovering/Resolving]
  - Altered visual depth perception [Unknown]
  - Product use in unapproved indication [Unknown]

NARRATIVE: CASE EVENT DATE: 20230316
